FAERS Safety Report 6271474-9 (Version None)
Quarter: 2009Q3

REPORT INFORMATION
  Report Type: 
  Country: None (occurrence: None)
  Receive Date: 20090717
  Receipt Date: 20090706
  Transmission Date: 20100115
  Serious: Yes (Other)
  Sender: FDA-Public Use
  Company Number: KR-PFIZER INC-2009239281

PATIENT

DRUGS (2)
  1. XANAX [Suspect]
     Indication: PANIC DISORDER
     Dosage: FREQUENCY: 2X/DAY,
     Route: 048
  2. DEPAS [Suspect]
     Route: 048

REACTIONS (7)
  - ABDOMINAL DISCOMFORT [None]
  - DEPRESSED MOOD [None]
  - DIARRHOEA [None]
  - FATIGUE [None]
  - HYPERVENTILATION [None]
  - PSYCHOMOTOR HYPERACTIVITY [None]
  - RESPIRATORY DEPRESSION [None]
